FAERS Safety Report 5735516-9 (Version None)
Quarter: 2008Q2

REPORT INFORMATION
  Report Type: 
  Country: None (occurrence: None)
  Receive Date: 20080512
  Receipt Date: 20080508
  Transmission Date: 20081010
  Serious: Yes (Hospitalization)
  Sender: FDA-Public Use
  Company Number: US-GILEAD-2008-0016404

PATIENT
  Sex: Female

DRUGS (5)
  1. LETAIRIS [Suspect]
     Indication: PULMONARY ARTERIAL HYPERTENSION
     Route: 048
     Dates: start: 20080108
  2. METOLAZONE [Suspect]
     Indication: HYPERTENSION
     Route: 048
     Dates: end: 20080410
  3. BUMEX [Concomitant]
     Indication: HYPERTENSION
     Route: 048
     Dates: start: 20080414
  4. BUMEX [Concomitant]
     Route: 048
     Dates: end: 20080410
  5. SPIRONOLACTONE [Concomitant]
     Indication: HYPERTENSION
     Route: 048

REACTIONS (1)
  - LOSS OF CONSCIOUSNESS [None]
